FAERS Safety Report 16768362 (Version 17)
Quarter: 2021Q2

REPORT INFORMATION
  Report Type: Report from Study
  Country: CA (occurrence: CA)
  Receive Date: 20190903
  Receipt Date: 20210527
  Transmission Date: 20210716
  Serious: Yes (Hospitalization)
  Sender: FDA-Public Use
  Company Number: PHHY2015CA116216

PATIENT
  Age: 68 Year
  Sex: Male

DRUGS (11)
  1. SANDOSTATIN LAR DEPOT [Suspect]
     Active Substance: OCTREOTIDE ACETATE
     Indication: ANAEMIA
     Dosage: 20 MG, QMO (ONCE A MONTH)
     Route: 030
     Dates: start: 20150528
  2. JAMP FOLIC ACID [Concomitant]
     Indication: PRODUCT USED FOR UNKNOWN INDICATION
     Dosage: 5 MG, QD
     Route: 048
  3. SANDOSTATIN LAR DEPOT [Suspect]
     Active Substance: OCTREOTIDE ACETATE
  4. JAMP ASA [Concomitant]
     Active Substance: ASPIRIN
     Indication: PRODUCT USED FOR UNKNOWN INDICATION
     Dosage: 80 MG, QD (EC)
     Route: 048
  5. JAMP FERROUS SULFATE [Concomitant]
     Active Substance: FERROUS SULFATE
     Indication: PRODUCT USED FOR UNKNOWN INDICATION
     Dosage: 300 MG, BID
     Route: 048
  6. ULTIBRO BREEZHALER [Concomitant]
     Active Substance: GLYCOPYRRONIUM\INDACATEROL
     Indication: PRODUCT USED FOR UNKNOWN INDICATION
     Dosage: 1 DF (50 MCG /110 MCG), QD
     Route: 055
  7. APO TAMSULOSIN [Concomitant]
     Active Substance: TAMSULOSIN HYDROCHLORIDE
     Indication: PRODUCT USED FOR UNKNOWN INDICATION
     Dosage: 0.4 MG, QD
     Route: 048
  8. SANDOSTATIN LAR DEPOT [Suspect]
     Active Substance: OCTREOTIDE ACETATE
     Indication: GASTROINTESTINAL ANGIODYSPLASIA
  9. JAMP VITA 3B [Concomitant]
     Indication: PRODUCT USED FOR UNKNOWN INDICATION
     Dosage: QD
     Route: 048
  10. APO PREGABALIN [Concomitant]
     Active Substance: PREGABALIN
     Indication: PRODUCT USED FOR UNKNOWN INDICATION
     Dosage: 75 MG, BID
     Route: 048
  11. JAMP ATORVASTATIN [Concomitant]
     Indication: PRODUCT USED FOR UNKNOWN INDICATION
     Dosage: 40 MG, QD
     Route: 048

REACTIONS (15)
  - Arrhythmia [Unknown]
  - Pleural effusion [Unknown]
  - Dyspnoea [Unknown]
  - Blood pressure decreased [Unknown]
  - Blood pressure systolic increased [Unknown]
  - Abdominal distension [Unknown]
  - Chest pain [Unknown]
  - Pneumonia [Unknown]
  - Dyspnoea [Recovering/Resolving]
  - Mobility decreased [Unknown]
  - Injection site pain [Recovered/Resolved]
  - Abdominal pain [Recovered/Resolved]
  - Faeces discoloured [Unknown]
  - Product use in unapproved indication [Unknown]
  - Coronary artery disease [Recovering/Resolving]

NARRATIVE: CASE EVENT DATE: 201512
